FAERS Safety Report 7576934-6 (Version None)
Quarter: 2011Q2

REPORT INFORMATION
  Report Type: 
  Country: None (occurrence: None)
  Receive Date: 20110628
  Receipt Date: 20110620
  Transmission Date: 20111010
  Serious: No
  Sender: FDA-Public Use
  Company Number: US-PFIZER INC-2011134302

PATIENT
  Sex: Female
  Weight: 53.5 kg

DRUGS (1)
  1. PREMARIN [Suspect]
     Dosage: UNK
     Dates: start: 20110614

REACTIONS (6)
  - ABDOMINAL DISCOMFORT [None]
  - ABDOMINAL PAIN UPPER [None]
  - MALAISE [None]
  - BACK PAIN [None]
  - VULVOVAGINAL DRYNESS [None]
  - VULVOVAGINAL PRURITUS [None]
